FAERS Safety Report 6348788-7 (Version None)
Quarter: 2009Q3

REPORT INFORMATION
  Report Type: 
  Country: None (occurrence: None)
  Receive Date: 20090911
  Receipt Date: 20090903
  Transmission Date: 20100115
  Serious: Yes (Other)
  Sender: FDA-Public Use
  Company Number: JP-BRISTOL-MYERS SQUIBB COMPANY-14694582

PATIENT
  Age: 25 Year
  Sex: Female

DRUGS (2)
  1. ABILIFY [Suspect]
     Indication: HALLUCINATION, AUDITORY
     Route: 048
     Dates: start: 20090116, end: 20090605
  2. LUVOX [Concomitant]
     Dosage: TAB
     Dates: start: 20081202

REACTIONS (1)
  - SCLERODERMA [None]
